FAERS Safety Report 9675065 (Version 1)
Quarter: 2013Q4

REPORT INFORMATION
  Report Type: Spontaneous
  Country: US (occurrence: None)
  Receive Date: 20131106
  Receipt Date: 20131106
  Transmission Date: 20140711
  Serious: No
  Sender: FDA-Public Use
  Company Number: None

PATIENT
  Age: 45 Year
  Sex: Female

DRUGS (1)
  1. AFINITOR [Suspect]
     Indication: RENAL CANCER
     Route: 048

REACTIONS (8)
  - Nausea [None]
  - Diarrhoea [None]
  - Vomiting [None]
  - Stomatitis [None]
  - Rash [None]
  - Dyspnoea [None]
  - Contusion [None]
  - Haemorrhage [None]
